FAERS Safety Report 7091870-X (Version None)
Quarter: 2010Q4

REPORT INFORMATION
  Report Type: 
  Country: None (occurrence: None)
  Receive Date: 20101109
  Receipt Date: 20101029
  Transmission Date: 20110411
  Serious: Yes (Hospitalization)
  Sender: FDA-Public Use
  Company Number: FR-BRISTOL-MYERS SQUIBB COMPANY-15372725

PATIENT
  Age: 76 Year
  Sex: Male

DRUGS (4)
  1. GLUCOPHAGE [Suspect]
     Route: 048
     Dates: end: 20100925
  2. RAMIPRIL [Suspect]
     Route: 048
     Dates: end: 20100925
  3. XYZAL [Suspect]
     Route: 048
     Dates: end: 20100925
  4. SERETIDE [Suspect]
     Route: 055
     Dates: end: 20100925

REACTIONS (1)
  - LUNG DISORDER [None]
